FAERS Safety Report 4273073-7 (Version None)
Quarter: 2004Q1

REPORT INFORMATION
  Report Type: 
  Country: None (occurrence: None)
  Receive Date: 20040114
  Receipt Date: 20040105
  Transmission Date: 20041129
  Serious: Yes (Death)
  Sender: FDA-Public Use
  Company Number: FRWYE488705JAN04

PATIENT
  Age: 28 Year
  Sex: Male

DRUGS (4)
  1. RAPAMUNE [Suspect]
     Indication: PROPHYLAXIS AGAINST TRANSPLANT REJECTION
     Dosage: ORAL
     Route: 048
     Dates: start: 20030816, end: 20030829
  2. PREDNISONE [Suspect]
     Indication: PROPHYLAXIS AGAINST TRANSPLANT REJECTION
     Dosage: 10 MG 1 X PER 1 DAY, ORAL
     Route: 048
     Dates: start: 20010215, end: 20031124
  3. PROGRAF [Suspect]
     Indication: PROPHYLAXIS AGAINST TRANSPLANT REJECTION
     Dosage: ORAL
     Route: 048
     Dates: start: 20030315, end: 20030816
  4. PROGRAF [Suspect]
     Indication: PROPHYLAXIS AGAINST TRANSPLANT REJECTION
     Dosage: ORAL
     Route: 048
     Dates: start: 20030829, end: 20031124

REACTIONS (9)
  - BACTERIA SPUTUM IDENTIFIED [None]
  - CANDIDIASIS [None]
  - CONDITION AGGRAVATED [None]
  - FUNGUS SPUTUM TEST POSITIVE [None]
  - HAEMOPHILUS INFECTION [None]
  - MULTI-ORGAN FAILURE [None]
  - PSEUDOMONAS INFECTION [None]
  - RESPIRATORY DISTRESS [None]
  - SALMONELLOSIS [None]
